FAERS Safety Report 16834348 (Version 2)
Quarter: 2019Q3

REPORT INFORMATION
  Report Type: Spontaneous
  Country: US (occurrence: US)
  Receive Date: 20190920
  Receipt Date: 20190924
  Transmission Date: 20191005
  Serious: Yes (Life-Threatening, Hospitalization, Other)
  Sender: FDA-Public Use
  Company Number: US-JNJFOC-20190919616

PATIENT
  Age: 76 Year
  Sex: Male

DRUGS (2)
  1. XARELTO [Suspect]
     Active Substance: RIVAROXABAN
     Indication: CEREBROVASCULAR ACCIDENT PROPHYLAXIS
     Dosage: 20 MG
     Route: 048
  2. MEGESTROL ACETATE. [Interacting]
     Active Substance: MEGESTROL ACETATE
     Indication: FAILURE TO THRIVE
     Dosage: 200 MG, BID
     Route: 048

REACTIONS (10)
  - Anaemia [Unknown]
  - Drug interaction [Unknown]
  - Pneumonia [Unknown]
  - Upper gastrointestinal haemorrhage [Unknown]
  - Acute respiratory failure [Unknown]
  - Unresponsive to stimuli [Unknown]
  - Incorrect dose administered [Unknown]
  - Duodenal ulcer [Unknown]
  - Metabolic acidosis [Unknown]
  - Acute kidney injury [Unknown]
